FAERS Safety Report 6381732-5 (Version None)
Quarter: 2009Q3

REPORT INFORMATION
  Report Type: 
  Country: None (occurrence: None)
  Receive Date: 20090930
  Receipt Date: 20090921
  Transmission Date: 20100115
  Serious: Yes (Hospitalization)
  Sender: FDA-Public Use
  Company Number: PHEH2009US11570

PATIENT
  Sex: Female

DRUGS (3)
  1. EXELON [Suspect]
     Dosage: UNK, UNK
     Route: 061
     Dates: end: 20090901
  2. CYMBALTA [Suspect]
     Dosage: UNK, UNK
     Route: 065
  3. LISINOPRIL [Suspect]
     Dosage: UNK, UNK
     Route: 065

REACTIONS (6)
  - ACUTE HEPATIC FAILURE [None]
  - ALANINE AMINOTRANSFERASE INCREASED [None]
  - ASPARTATE AMINOTRANSFERASE INCREASED [None]
  - INTERNATIONAL NORMALISED RATIO INCREASED [None]
  - LIVER FUNCTION TEST ABNORMAL [None]
  - PYREXIA [None]
